FAERS Safety Report 7526535-0 (Version None)
Quarter: 2011Q2

REPORT INFORMATION
  Report Type: 
  Country: None (occurrence: None)
  Receive Date: 20110606
  Receipt Date: 20110523
  Transmission Date: 20111010
  Serious: Yes (Other)
  Sender: FDA-Public Use
  Company Number: US-UCBSA-026053

PATIENT
  Sex: Female

DRUGS (2)
  1. CIMZIA [Suspect]
     Route: 058
     Dates: start: 20110101, end: 20110401
  2. CIMZIA [Suspect]
     Indication: CROHN'S DISEASE
     Dosage: WITHELD FOR JANUARY DOSE
     Route: 058
     Dates: start: 20091201, end: 20110101

REACTIONS (3)
  - LARGE INTESTINE ANASTOMOSIS [None]
  - OPEN WOUND [None]
  - COLONIC STENOSIS [None]
